FAERS Safety Report 5264140-X (Version None)
Quarter: 2007Q1

REPORT INFORMATION
  Report Type: 
  Country: None (occurrence: None)
  Receive Date: 20070309
  Receipt Date: 20070222
  Transmission Date: 20070707
  Serious: Yes (Other)
  Sender: FDA-Public Use
  Company Number: 2005BI021580

PATIENT
  Age: 49 Year
  Sex: Male

DRUGS (9)
  1. ZEVALIN [Suspect]
     Indication: NON-HODGKIN'S LYMPHOMA
     Dosage: 1X; I V
     Route: 042
     Dates: start: 20050113, end: 20050113
  2. ZEVALIN [Suspect]
     Indication: NON-HODGKIN'S LYMPHOMA
     Dosage: 0.4 MCI/KG/1X; IV
     Route: 042
     Dates: start: 20050120, end: 20050120
  3. RITUXIMAB [Concomitant]
  4. ACETAMINOPHEN [Concomitant]
  5. DEXCHLORPHENIRAMINE [Concomitant]
  6. CALCIGRAN [Concomitant]
  7. VALPROATE SODIUM [Concomitant]
  8. IBUPROFEN [Concomitant]
  9. PINEX FORTE [Concomitant]

REACTIONS (5)
  - CONSTIPATION [None]
  - DIARRHOEA [None]
  - DYSPEPSIA [None]
  - PROCTITIS ULCERATIVE [None]
  - WEIGHT DECREASED [None]
